FAERS Safety Report 19256815 (Version 2)
Quarter: 2021Q2

REPORT INFORMATION
  Report Type: Report from Study
  Country: US (occurrence: US)
  Receive Date: 20210514
  Receipt Date: 20210521
  Transmission Date: 20210717
  Serious: No
  Sender: FDA-Public Use
  Company Number: NVSC2021US099585

PATIENT
  Age: 43 Year
  Sex: Female

DRUGS (4)
  1. KESIMPTA [Suspect]
     Active Substance: OFATUMUMAB
     Indication: FATIGUE
     Dosage: 20 MG, QW (20MG/0.4ML)
     Route: 058
     Dates: start: 20210508
  2. KESIMPTA [Suspect]
     Active Substance: OFATUMUMAB
     Indication: PRODUCT USED FOR UNKNOWN INDICATION
     Dosage: UNK
     Route: 065
     Dates: start: 20210424
  3. KESIMPTA [Suspect]
     Active Substance: OFATUMUMAB
     Indication: NAUSEA
  4. KESIMPTA [Suspect]
     Active Substance: OFATUMUMAB
     Indication: DECREASED APPETITE

REACTIONS (18)
  - Hyperhidrosis [Unknown]
  - Headache [Unknown]
  - Pyrexia [Recovered/Resolved]
  - Decreased appetite [Unknown]
  - Electric shock sensation [Unknown]
  - Pain in extremity [Unknown]
  - Headache [Recovered/Resolved]
  - Nasopharyngitis [Unknown]
  - Migraine [Recovered/Resolved]
  - Hot flush [Unknown]
  - Chills [Recovered/Resolved]
  - Nausea [Unknown]
  - Throat irritation [Unknown]
  - Night sweats [Unknown]
  - Asthenia [Unknown]
  - Fatigue [Unknown]
  - Pruritus [Unknown]
  - Pruritus [Recovered/Resolved]

NARRATIVE: CASE EVENT DATE: 20210508
